FAERS Safety Report 9312527 (Version 1)
Quarter: 2013Q2

REPORT INFORMATION
  Report Type: Spontaneous
  Country: US (occurrence: US)
  Receive Date: 20130528
  Receipt Date: 20130528
  Transmission Date: 20140414
  Serious: Yes (Other)
  Sender: FDA-Public Use
  Company Number: US-GLAXOSMITHKLINE-A1016954A

PATIENT
  Age: 41 Year
  Sex: Female
  Weight: 106.8 kg

DRUGS (1)
  1. ABREVA [Suspect]
     Indication: ORAL HERPES
     Route: 061
     Dates: start: 20130319, end: 20130321

REACTIONS (2)
  - Lip swelling [Not Recovered/Not Resolved]
  - Drug administration error [Unknown]
